FAERS Safety Report 17780568 (Version 7)
Quarter: 2023Q2

REPORT INFORMATION
  Report Type: Spontaneous
  Country: US (occurrence: US)
  Receive Date: 20200514
  Receipt Date: 20230531
  Transmission Date: 20230722
  Serious: Yes (Hospitalization, Other)
  Sender: FDA-Public Use
  Company Number: US-GILEAD-2020-0466910

PATIENT
  Age: 27 Year
  Sex: Male
  Weight: 56.236 kg

DRUGS (39)
  1. VIREAD [Suspect]
     Active Substance: TENOFOVIR DISOPROXIL FUMARATE
     Indication: HIV infection
     Dosage: UNK
     Route: 048
     Dates: start: 200803, end: 2015
  2. TRUVADA [Suspect]
     Active Substance: EMTRICITABINE\TENOFOVIR DISOPROXIL FUMARATE
     Indication: HIV infection
     Dosage: UNK
     Route: 048
     Dates: start: 2007, end: 2015
  3. TRUVADA [Suspect]
     Active Substance: EMTRICITABINE\TENOFOVIR DISOPROXIL FUMARATE
     Dosage: UNK
     Route: 065
     Dates: start: 20111013, end: 201310
  4. TRUVADA [Suspect]
     Active Substance: EMTRICITABINE\TENOFOVIR DISOPROXIL FUMARATE
     Dosage: UNK
     Route: 065
     Dates: start: 20131025, end: 201408
  5. TRUVADA [Suspect]
     Active Substance: EMTRICITABINE\TENOFOVIR DISOPROXIL FUMARATE
     Dosage: UNK
     Route: 065
     Dates: start: 20140808, end: 201411
  6. AMITRIPTYLINE [Concomitant]
     Active Substance: AMITRIPTYLINE
  7. AMOXICILLIN [Concomitant]
     Active Substance: AMOXICILLIN
  8. ACETAMINOPHEN [Concomitant]
     Active Substance: ACETAMINOPHEN
  9. ASPIRIN [Concomitant]
     Active Substance: ASPIRIN
  10. ATORVASTATIN [Concomitant]
     Active Substance: ATORVASTATIN
  11. BACTRIM [Concomitant]
     Active Substance: SULFAMETHOXAZOLE\TRIMETHOPRIM
  12. AMLODIPINE [Concomitant]
     Active Substance: AMLODIPINE BESYLATE
  13. LISINOPRIL [Concomitant]
     Active Substance: LISINOPRIL
  14. NIFEDIPINE [Concomitant]
     Active Substance: NIFEDIPINE
  15. LABETALOL HYDROCHLORIDE [Concomitant]
     Active Substance: LABETALOL HYDROCHLORIDE
  16. PRAVASTATIN [Concomitant]
     Active Substance: PRAVASTATIN
  17. HYDROCORTISONE [Concomitant]
     Active Substance: HYDROCORTISONE
  18. CRESTOR [Concomitant]
     Active Substance: ROSUVASTATIN CALCIUM
  19. FAMOTIDINE [Concomitant]
     Active Substance: FAMOTIDINE
  20. TESTOSTERONE [Concomitant]
     Active Substance: TESTOSTERONE
  21. LANSOPRAZOLE [Concomitant]
     Active Substance: LANSOPRAZOLE
  22. LOVENOX [Concomitant]
     Active Substance: ENOXAPARIN SODIUM
  23. HUMALOG [Concomitant]
     Active Substance: INSULIN LISPRO
  24. LANTUS [Concomitant]
     Active Substance: INSULIN GLARGINE
  25. GLUCAGON [Concomitant]
     Active Substance: GLUCAGON
  26. OMEPRAZOLE [Concomitant]
     Active Substance: OMEPRAZOLE
  27. NAPROXEN [Concomitant]
     Active Substance: NAPROXEN
  28. GADOLINIUM [Concomitant]
     Active Substance: GADOLINIUM
  29. CITALOPRAM [Concomitant]
     Active Substance: CITALOPRAM HYDROBROMIDE
  30. EPIVIR [Concomitant]
     Active Substance: LAMIVUDINE
  31. EPZICOM [Concomitant]
     Active Substance: ABACAVIR SULFATE\LAMIVUDINE
  32. NORVIR [Concomitant]
     Active Substance: RITONAVIR
  33. PREZCOBIX [Concomitant]
     Active Substance: COBICISTAT\DARUNAVIR ETHANOLATE
  34. TIVICAY [Concomitant]
     Active Substance: DOLUTEGRAVIR SODIUM
  35. ZIAGEN [Concomitant]
     Active Substance: ABACAVIR SULFATE
  36. CYANOCOBALAMIN [Concomitant]
     Active Substance: CYANOCOBALAMIN
  37. GABAPENTIN [Concomitant]
     Active Substance: GABAPENTIN
  38. TRAZODONE [Concomitant]
     Active Substance: TRAZODONE HYDROCHLORIDE
  39. ABACAVIR [Concomitant]
     Active Substance: ABACAVIR

REACTIONS (20)
  - Chronic kidney disease [Not Recovered/Not Resolved]
  - End stage renal disease [Not Recovered/Not Resolved]
  - Osteoporosis [Not Recovered/Not Resolved]
  - Multiple fractures [Unknown]
  - Foot fracture [Recovered/Resolved]
  - Renal impairment [Unknown]
  - Hyperkalaemia [Recovered/Resolved]
  - Hyperkalaemia [Recovered/Resolved]
  - Proteinuria [Not Recovered/Not Resolved]
  - Acute kidney injury [Recovered/Resolved]
  - Acute kidney injury [Recovered/Resolved]
  - Renal failure [Not Recovered/Not Resolved]
  - Anaemia of chronic disease [Not Recovered/Not Resolved]
  - Hypertension [Not Recovered/Not Resolved]
  - Nephropathy [Not Recovered/Not Resolved]
  - Foot fracture [Not Recovered/Not Resolved]
  - Osteopenia [Unknown]
  - Bone density decreased [Unknown]
  - Pain [Unknown]
  - Emotional distress [Unknown]

NARRATIVE: CASE EVENT DATE: 20150101
